FAERS Safety Report 13626761 (Version 3)
Quarter: 2017Q3

REPORT INFORMATION
  Report Type: Spontaneous
  Country: US (occurrence: US)
  Receive Date: 20170607
  Receipt Date: 20170812
  Transmission Date: 20171127
  Serious: No
  Sender: FDA-Public Use
  Company Number: US-JNJFOC-20170604321

PATIENT
  Sex: Male

DRUGS (5)
  1. RISPERDAL [Suspect]
     Active Substance: RISPERIDONE
     Indication: PSYCHOTIC DISORDER
     Dosage: AT VARYING DOSES OF 3MG; 2.5MG; 2.0MG;4MG; 5MG; 1MG AND 6MG
     Route: 048
     Dates: start: 1996, end: 2010
  2. RISPERDAL [Suspect]
     Active Substance: RISPERIDONE
     Indication: ANGER
     Dosage: AT VARYING DOSES OF 3MG; 2.5MG; 2.0MG;4MG; 5MG; 1MG AND 6MG
     Route: 048
     Dates: start: 1996, end: 2010
  3. RISPERDAL [Suspect]
     Active Substance: RISPERIDONE
     Indication: THINKING ABNORMAL
     Dosage: AT VARYING DOSES OF 3MG; 2.5MG; 2.0MG;4MG; 5MG; 1MG AND 6MG
     Route: 048
     Dates: start: 1996, end: 2010
  4. RISPERDAL [Suspect]
     Active Substance: RISPERIDONE
     Indication: IMPULSE-CONTROL DISORDER
     Dosage: AT VARYING DOSES OF 3MG; 2.5MG; 2.0MG;4MG; 5MG; 1MG AND 6MG
     Route: 048
     Dates: start: 1996, end: 2010
  5. RISPERIDONE. [Suspect]
     Active Substance: RISPERIDONE
     Indication: PRODUCT USED FOR UNKNOWN INDICATION
     Route: 048

REACTIONS (2)
  - Gynaecomastia [Unknown]
  - Abnormal weight gain [Unknown]

NARRATIVE: CASE EVENT DATE: 1998
